FAERS Safety Report 7734137-6 (Version None)
Quarter: 2011Q3

REPORT INFORMATION
  Report Type: 
  Country: None (occurrence: None)
  Receive Date: 20110907
  Receipt Date: 20110831
  Transmission Date: 20111222
  Serious: Yes (Hospitalization)
  Sender: FDA-Public Use
  Company Number: FR-ROCHE-800500

PATIENT
  Sex: Female

DRUGS (6)
  1. CELLCEPT [Suspect]
     Route: 048
  2. RAPAMUNE [Suspect]
     Route: 048
     Dates: start: 20100301, end: 20110512
  3. REPAGLINIDE [Concomitant]
  4. PREDNISONE [Concomitant]
  5. ATORVASTATIN CALCIUM [Concomitant]
  6. ZESTORETIC [Concomitant]

REACTIONS (2)
  - PANCREATITIS ACUTE [None]
  - HYPERTRIGLYCERIDAEMIA [None]
